FAERS Safety Report 4822335-0 (Version None)
Quarter: 2005Q4

REPORT INFORMATION
  Report Type: 
  Country: None (occurrence: None)
  Receive Date: 20051103
  Receipt Date: 20051017
  Transmission Date: 20060501
  Serious: Yes (Hospitalization)
  Sender: FDA-Public Use
  Company Number: DSA_27329_2005

PATIENT
  Age: 74 Year
  Sex: Male

DRUGS (23)
  1. DILTIAZEM HCL [Suspect]
     Indication: ATRIAL FIBRILLATION
     Dosage: 5 MG Q10MIN IV
     Route: 042
  2. DILTIAZEM HCL [Suspect]
     Indication: ATRIAL FIBRILLATION
     Dosage: 30 MG QID PO
     Route: 048
  3. DILTIAZEM HCL [Suspect]
     Indication: ATRIAL FIBRILLATION
     Dosage: 120 MG QID PO
     Route: 048
  4. CHLOROTHIAZIDE [Concomitant]
  5. SPIRONOLACTONE [Concomitant]
  6. ALLOPURINOL [Concomitant]
  7. ATORVASTATIN CALCIUM [Concomitant]
  8. FLUTICASONE + SALMETEROL [Concomitant]
  9. MOXIFLOXACIN [Concomitant]
  10. FLUCONAZOLE [Concomitant]
  11. CYTARABINE [Concomitant]
  12. IDARUBICIN HCL [Concomitant]
  13. VANCOMYCIN [Concomitant]
  14. CEFEPIME [Concomitant]
  15. TOBRAMYCIN [Concomitant]
  16. MEROPENEM [Concomitant]
  17. VORICONAZOLE [Concomitant]
  18. SULFAMETHOXAZOLE + TRIMETHOPRIM [Concomitant]
  19. LOPERAMIDE [Concomitant]
  20. METRONIDAZOLE [Concomitant]
  21. LINEZOLID [Concomitant]
  22. AMIODARONE HCL [Concomitant]
  23. DIGOXIN [Concomitant]

REACTIONS (10)
  - ABDOMINAL DISTENSION [None]
  - ABDOMINAL INFECTION [None]
  - BLOOD CREATININE INCREASED [None]
  - BOWEL SOUNDS ABNORMAL [None]
  - CHRONIC OBSTRUCTIVE PULMONARY DISEASE [None]
  - CONDITION AGGRAVATED [None]
  - DIARRHOEA [None]
  - ENTEROCOCCAL INFECTION [None]
  - ENTEROCOLITIS [None]
  - GASTROINTESTINAL HYPOMOTILITY [None]
